FAERS Safety Report 17302029 (Version 1)
Quarter: 2020Q1

REPORT INFORMATION
  Report Type: Spontaneous
  Country: US (occurrence: US)
  Receive Date: 20200122
  Receipt Date: 20200122
  Transmission Date: 20200409
  Serious: No
  Sender: FDA-Public Use
  Company Number: US-ABBVIE-19K-163-2994834-00

PATIENT
  Sex: Female
  Weight: 71.73 kg

DRUGS (2)
  1. ELAGOLIX [Suspect]
     Active Substance: ELAGOLIX
     Route: 048
     Dates: start: 201907, end: 201910
  2. ELAGOLIX [Suspect]
     Active Substance: ELAGOLIX
     Indication: ENDOMETRIOSIS
     Route: 048
     Dates: start: 201904, end: 201907

REACTIONS (1)
  - Maternal exposure during pregnancy [Unknown]
